FAERS Safety Report 7786993-3 (Version None)
Quarter: 2011Q3

REPORT INFORMATION
  Report Type: 
  Country: None (occurrence: None)
  Receive Date: 20110929
  Receipt Date: 20110920
  Transmission Date: 20111222
  Serious: Yes (Other)
  Sender: FDA-Public Use
  Company Number: US-US-EMD SERONO, INC.-7084785

PATIENT
  Sex: Female

DRUGS (4)
  1. REBIF [Suspect]
     Indication: MULTIPLE SCLEROSIS
     Route: 058
     Dates: start: 20060805, end: 20110601
  2. KLONOPIN [Concomitant]
  3. ROBAXIN [Concomitant]
     Indication: INTERVERTEBRAL DISC DISORDER
  4. TRAMADOL [Concomitant]
     Indication: INTERVERTEBRAL DISC DISORDER

REACTIONS (1)
  - CHRONIC OBSTRUCTIVE PULMONARY DISEASE [None]
